FAERS Safety Report 5849274-0 (Version None)
Quarter: 2008Q3

REPORT INFORMATION
  Report Type: 
  Country: None (occurrence: None)
  Receive Date: 20080819
  Receipt Date: 20071119
  Transmission Date: 20090109
  Serious: No
  Sender: FDA-Public Use
  Company Number: US-BAYER-US-2007-043559

PATIENT
  Age: 39 Year
  Sex: Female

DRUGS (8)
  1. BETASERON [Suspect]
     Indication: SECONDARY PROGRESSIVE MULTIPLE SCLEROSIS
     Dosage: AS USED: 8 MIU
     Dates: start: 20010801, end: 20070804
  2. LEXAPRO [Concomitant]
     Indication: DEPRESSION
  3. SINGULAIR [Concomitant]
  4. BACLOFEN [Concomitant]
  5. NEURONTIN [Concomitant]
  6. TOPAMAX [Concomitant]
  7. PREVACID [Concomitant]
  8. PERCOCET [Concomitant]

REACTIONS (1)
  - SALIVARY GLAND CALCULUS [None]
